FAERS Safety Report 10243651 (Version 3)
Quarter: 2014Q3

REPORT INFORMATION
  Report Type: Spontaneous
  Country: DE (occurrence: None)
  Receive Date: 20140616
  Receipt Date: 20140929
  Transmission Date: 20150326
  Serious: Yes (Other)
  Sender: FDA-Public Use
  Company Number: 2014DZ0239

PATIENT
  Age: 17 Year
  Sex: Male

DRUGS (2)
  1. CURACNE (ISOTRETINOIN) (ISOTRETINOIN) [Concomitant]
  2. KINERET [Suspect]
     Active Substance: ANAKINRA
     Indication: JUVENILE IDIOPATHIC ARTHRITIS
     Route: 058
     Dates: start: 20120527

REACTIONS (4)
  - Off label use [None]
  - Arthritis [None]
  - Liver transplant [None]
  - Acne pustular [None]

NARRATIVE: CASE EVENT DATE: 20130929
